FAERS Safety Report 10190895 (Version 1)
Quarter: 2014Q2

REPORT INFORMATION
  Report Type: Spontaneous
  Country: US (occurrence: None)
  Receive Date: 20140521
  Receipt Date: 20140521
  Transmission Date: 20141212
  Serious: No
  Sender: FDA-Public Use
  Company Number: None

PATIENT
  Age: 66 Year
  Sex: Female
  Weight: 121.11 kg

DRUGS (4)
  1. BRIMONIDINE TARTRATE [Suspect]
     Indication: INTRAOCULAR PRESSURE INCREASED
     Dosage: 0.2 %, ONE DROP INSTILL, EACH EYE TWICE DAILY, DROPPER IN EYES
     Route: 047
     Dates: start: 20140131, end: 20140424
  2. ALPHAGAN [Concomitant]
  3. TUMS [Concomitant]
  4. ANTIACIDIS (WALMART) [Concomitant]

REACTIONS (7)
  - Eye pruritus [None]
  - Foreign body sensation in eyes [None]
  - Balance disorder [None]
  - Ocular hyperaemia [None]
  - Dry eye [None]
  - Vision blurred [None]
  - Product substitution issue [None]
